FAERS Safety Report 8452041-5 (Version None)
Quarter: 2012Q2

REPORT INFORMATION
  Report Type: 
  Country: None (occurrence: None)
  Receive Date: 20120620
  Receipt Date: 20120612
  Transmission Date: 20120825
  Serious: Yes (Hospitalization)
  Sender: FDA-Public Use
  Company Number: CA-ABBOTT-12P-028-0927068-00

PATIENT
  Sex: Female
  Weight: 61.29 kg

DRUGS (4)
  1. ADALAT [Concomitant]
     Indication: BLOOD PRESSURE
     Route: 048
  2. HYZAAR [Concomitant]
     Indication: BLOOD PRESSURE
     Route: 048
  3. METHOTREXATE [Concomitant]
     Indication: HYPERTENSION
     Route: 048
     Dates: start: 19970101
  4. HUMIRA [Suspect]
     Indication: RHEUMATOID ARTHRITIS
     Route: 058
     Dates: start: 20041111, end: 20120406

REACTIONS (6)
  - PERICARDIAL EFFUSION [None]
  - LUNG INFECTION [None]
  - DYSPNOEA [None]
  - PLEURAL EFFUSION [None]
  - CARDIAC FAILURE [None]
  - PNEUMONIA [None]
